FAERS Safety Report 11936599 (Version 2)
Quarter: 2016Q2

REPORT INFORMATION
  Report Type: Spontaneous
  Country: GB (occurrence: GB)
  Receive Date: 20160121
  Receipt Date: 20160415
  Transmission Date: 20160815
  Serious: Yes (Disabling, Other)
  Sender: FDA-Public Use
  Company Number: GB-PFIZER INC-2015103849

PATIENT
  Age: 42 Year
  Sex: Female
  Weight: 71.9 kg

DRUGS (2)
  1. LYRICA [Suspect]
     Active Substance: PREGABALIN
     Indication: VULVOVAGINAL PAIN
     Dosage: 300 MG, 2X/DAY
     Route: 048
     Dates: start: 201110
  2. NORTRIPTYLINE [Concomitant]
     Active Substance: NORTRIPTYLINE
     Indication: VULVOVAGINAL PAIN
     Dosage: 10-40 MG, 1X/DAY (NIGHT)
     Route: 048
     Dates: start: 20140205

REACTIONS (59)
  - Influenza like illness [Not Recovered/Not Resolved]
  - Feeling abnormal [Unknown]
  - Paraesthesia oral [Not Recovered/Not Resolved]
  - Drug dose omission [Unknown]
  - Paraesthesia [Not Recovered/Not Resolved]
  - Eye movement disorder [Unknown]
  - Photopsia [Unknown]
  - Eye pain [Unknown]
  - Peripheral coldness [Unknown]
  - Intentional product use issue [Unknown]
  - Loss of consciousness [Unknown]
  - Fatigue [Not Recovered/Not Resolved]
  - Feeling abnormal [Not Recovered/Not Resolved]
  - Lethargy [Unknown]
  - Sexual dysfunction [Unknown]
  - Hypoaesthesia oral [Unknown]
  - Muscle twitching [Unknown]
  - Product use issue [Unknown]
  - Mental impairment [Unknown]
  - Hypoaesthesia [Not Recovered/Not Resolved]
  - Insomnia [Unknown]
  - Feeling drunk [Unknown]
  - Weight increased [Unknown]
  - Back pain [Unknown]
  - Oropharyngeal pain [Unknown]
  - Malaise [Unknown]
  - Hyperhidrosis [Not Recovered/Not Resolved]
  - Memory impairment [Unknown]
  - Dry mouth [Unknown]
  - Blood glucose decreased [Unknown]
  - Aphasia [Unknown]
  - Eye irritation [Unknown]
  - Tremor [Not Recovered/Not Resolved]
  - Muscular weakness [Not Recovered/Not Resolved]
  - Vision blurred [Unknown]
  - Vertigo [Unknown]
  - Dysstasia [Unknown]
  - Hyperaesthesia [Unknown]
  - Dizziness [Not Recovered/Not Resolved]
  - Migraine [Unknown]
  - Speech disorder [Unknown]
  - Flatulence [Unknown]
  - Abnormal dreams [Unknown]
  - Dyspnoea [Unknown]
  - Fear [Unknown]
  - Paraesthesia [Not Recovered/Not Resolved]
  - Nausea [Not Recovered/Not Resolved]
  - Asthenia [Not Recovered/Not Resolved]
  - Clumsiness [Unknown]
  - Burning sensation [Unknown]
  - Dry eye [Unknown]
  - Throat tightness [Unknown]
  - Dysgraphia [Unknown]
  - Menstrual disorder [Unknown]
  - Headache [Not Recovered/Not Resolved]
  - Photosensitivity reaction [Not Recovered/Not Resolved]
  - Nervous system disorder [Not Recovered/Not Resolved]
  - Muscle spasms [Unknown]
  - Dysuria [Unknown]

NARRATIVE: CASE EVENT DATE: 201110
